FAERS Safety Report 12658225 (Version 8)
Quarter: 2017Q2

REPORT INFORMATION
  Report Type: Spontaneous
  Country: CA (occurrence: CA)
  Receive Date: 20160817
  Receipt Date: 20170613
  Transmission Date: 20170830
  Serious: Yes (Hospitalization, Other)
  Sender: FDA-Public Use
  Company Number: CA-ROCHE-1814783

PATIENT
  Age: 22 Year
  Sex: Female

DRUGS (8)
  1. XOLAIR [Suspect]
     Active Substance: OMALIZUMAB
     Route: 058
     Dates: start: 2017
  2. XOLAIR [Suspect]
     Active Substance: OMALIZUMAB
     Route: 058
     Dates: start: 20170601
  3. SINGULAIR [Concomitant]
     Active Substance: MONTELUKAST SODIUM
     Indication: PRODUCT USED FOR UNKNOWN INDICATION
     Route: 065
  4. XOLAIR [Suspect]
     Active Substance: OMALIZUMAB
     Route: 058
     Dates: start: 20170221
  5. XOLAIR [Suspect]
     Active Substance: OMALIZUMAB
     Dosage: UNK
     Route: 058
     Dates: start: 20160817
  6. SYMBICORT [Concomitant]
     Active Substance: BUDESONIDE\FORMOTEROL FUMARATE DIHYDRATE
     Indication: PRODUCT USED FOR UNKNOWN INDICATION
     Route: 065
  7. XOLAIR [Suspect]
     Active Substance: OMALIZUMAB
     Indication: ASTHMA
     Route: 058
     Dates: start: 20160303
  8. XOLAIR [Suspect]
     Active Substance: OMALIZUMAB
     Route: 058
     Dates: start: 20170405

REACTIONS (23)
  - Dizziness [Unknown]
  - Headache [Unknown]
  - Injection site reaction [Unknown]
  - Upper respiratory tract infection [Unknown]
  - Sputum discoloured [Recovered/Resolved]
  - Chills [Recovered/Resolved]
  - Swelling face [Unknown]
  - Respiratory rate increased [Unknown]
  - Lactose intolerance [Unknown]
  - Peripheral swelling [Unknown]
  - Pharyngeal oedema [Unknown]
  - Cough [Recovered/Resolved]
  - Gastrointestinal disorder [Unknown]
  - Gluten sensitivity [Unknown]
  - Dyspnoea [Not Recovered/Not Resolved]
  - Secretion discharge [Recovered/Resolved]
  - Abdominal pain [Unknown]
  - Ovarian cyst ruptured [Recovering/Resolving]
  - Bronchitis [Unknown]
  - Throat irritation [Unknown]
  - Erythema [Unknown]
  - Ovarian cyst [Unknown]
  - Wheezing [Unknown]

NARRATIVE: CASE EVENT DATE: 20160304
